FAERS Safety Report 4409090-3 (Version None)
Quarter: 2004Q3

REPORT INFORMATION
  Report Type: 
  Country: None (occurrence: None)
  Receive Date: 20040727
  Receipt Date: 20040706
  Transmission Date: 20050211
  Serious: Yes (Disabling)
  Sender: FDA-Public Use
  Company Number: ZA-MERCK-0407ZAF00010

PATIENT
  Age: 78 Year
  Sex: Female
  Weight: 60 kg

DRUGS (5)
  1. FOSAMAX [Suspect]
     Indication: OSTEOPOROSIS
     Route: 048
     Dates: start: 20040101, end: 20040501
  2. FOSAMAX [Suspect]
     Route: 048
     Dates: start: 20040501, end: 20040701
  3. IRBESARTAN [Concomitant]
     Indication: HYPERTENSION
     Route: 048
  4. LEVOTHYROXINE SODIUM [Concomitant]
     Route: 048
  5. OXAZEPAM [Concomitant]
     Route: 048

REACTIONS (5)
  - EOSINOPHILIA [None]
  - ERYTHEMA MULTIFORME [None]
  - PEMPHIGOID [None]
  - PNEUMONITIS [None]
  - PRURITUS [None]
